FAERS Safety Report 5566304-4 (Version None)
Quarter: 2007Q4

REPORT INFORMATION
  Report Type: 
  Country: None (occurrence: None)
  Receive Date: 20071219
  Receipt Date: 20071206
  Transmission Date: 20080405
  Serious: Yes (Other)
  Sender: FDA-Public Use
  Company Number: US-BAYER-200712973BCC

PATIENT
  Age: 76 Year
  Sex: Female
  Weight: 60 kg

DRUGS (7)
  1. ALEVE [Suspect]
     Indication: PROCEDURAL PAIN
     Dosage: TOTAL DAILY DOSE: 220 MG  UNIT DOSE: 220 MG
     Route: 048
     Dates: start: 20070913
  2. CEPHALEXIN [Concomitant]
     Route: 048
  3. VERAPAMIL [Concomitant]
     Dosage: TOTAL DAILY DOSE: 240 MG  UNIT DOSE: 240 MG
     Route: 048
  4. SYNTHROID [Concomitant]
     Dosage: TOTAL DAILY DOSE: 75 MG  UNIT DOSE: 75 MG
     Route: 048
  5. EFFEXOR [Concomitant]
     Dosage: TOTAL DAILY DOSE: 75 MG  UNIT DOSE: 75 MG
  6. RESTORIL [Concomitant]
     Dosage: UNIT DOSE: 30 MG
  7. EFFEXOR [Concomitant]
     Route: 048

REACTIONS (4)
  - FLANK PAIN [None]
  - HAEMATURIA [None]
  - OPERATIVE HAEMORRHAGE [None]
  - POLLAKIURIA [None]
